FAERS Safety Report 17736912 (Version 7)
Quarter: 2022Q4

REPORT INFORMATION
  Report Type: Spontaneous
  Country: CA (occurrence: None)
  Receive Date: 20200502
  Receipt Date: 20221212
  Transmission Date: 20230113
  Serious: Yes (Death, Hospitalization, Disabling)
  Sender: FDA-Public Use
  Company Number: CA-ROCHE-2587799

PATIENT
  Age: 61 Year
  Sex: Female
  Weight: 67 kg

DRUGS (70)
  1. TRASTUZUMAB [Suspect]
     Active Substance: TRASTUZUMAB
     Indication: Breast cancer
     Route: 065
  2. CEFTRIAXONE SODIUM [Suspect]
     Active Substance: CEFTRIAXONE SODIUM
     Indication: Breast cancer
     Route: 042
  3. CEFTRIAXONE SODIUM [Suspect]
     Active Substance: CEFTRIAXONE SODIUM
     Route: 042
  4. CEFTRIAXONE SODIUM [Suspect]
     Active Substance: CEFTRIAXONE SODIUM
     Route: 042
  5. AMIODARONE HYDROCHLORIDE [Suspect]
     Active Substance: AMIODARONE HYDROCHLORIDE
     Indication: Breast cancer
     Route: 065
  6. DILTIAZEM HYDROCHLORIDE [Suspect]
     Active Substance: DILTIAZEM HYDROCHLORIDE
     Indication: Breast cancer
     Route: 048
  7. DILTIAZEM HYDROCHLORIDE [Suspect]
     Active Substance: DILTIAZEM HYDROCHLORIDE
     Route: 048
  8. DIGOXIN [Suspect]
     Active Substance: DIGOXIN
     Indication: Breast cancer
     Route: 042
  9. DIGOXIN [Suspect]
     Active Substance: DIGOXIN
     Route: 042
  10. DIGOXIN [Suspect]
     Active Substance: DIGOXIN
     Route: 042
  11. DIGOXIN [Suspect]
     Active Substance: DIGOXIN
     Route: 042
  12. DIGOXIN [Suspect]
     Active Substance: DIGOXIN
     Route: 042
  13. DIGOXIN [Suspect]
     Active Substance: DIGOXIN
     Route: 042
  14. DIMENHYDRINATE [Suspect]
     Active Substance: DIMENHYDRINATE
     Indication: Breast cancer
     Route: 042
  15. DIMENHYDRINATE [Suspect]
     Active Substance: DIMENHYDRINATE
     Route: 042
  16. DIMENHYDRINATE [Suspect]
     Active Substance: DIMENHYDRINATE
     Route: 042
  17. DIMENHYDRINATE [Suspect]
     Active Substance: DIMENHYDRINATE
     Route: 042
  18. DOXORUBICIN HYDROCHLORIDE [Suspect]
     Active Substance: DOXORUBICIN HYDROCHLORIDE
     Indication: Breast cancer
     Route: 042
  19. DOXORUBICIN HYDROCHLORIDE [Suspect]
     Active Substance: DOXORUBICIN HYDROCHLORIDE
     Route: 042
  20. ENOXAPARIN SODIUM [Suspect]
     Active Substance: ENOXAPARIN SODIUM
     Indication: Breast cancer
     Route: 058
  21. ENOXAPARIN SODIUM [Suspect]
     Active Substance: ENOXAPARIN SODIUM
     Route: 058
  22. FUROSEMIDE [Suspect]
     Active Substance: FUROSEMIDE
     Indication: Breast cancer
     Route: 048
  23. HYDRALAZINE [Suspect]
     Active Substance: HYDRALAZINE HYDROCHLORIDE
     Indication: Breast cancer
     Route: 042
  24. HYDRALAZINE [Suspect]
     Active Substance: HYDRALAZINE HYDROCHLORIDE
     Route: 042
  25. HYDRALAZINE [Suspect]
     Active Substance: HYDRALAZINE HYDROCHLORIDE
     Route: 042
  26. HYDROMORPHONE HYDROCHLORIDE [Suspect]
     Active Substance: HYDROMORPHONE HYDROCHLORIDE
     Indication: Breast cancer
     Route: 042
  27. HYDROMORPHONE HYDROCHLORIDE [Suspect]
     Active Substance: HYDROMORPHONE HYDROCHLORIDE
     Route: 042
  28. METOPROLOL TARTRATE [Suspect]
     Active Substance: METOPROLOL TARTRATE
     Indication: Breast cancer
     Route: 042
  29. METOPROLOL TARTRATE [Suspect]
     Active Substance: METOPROLOL TARTRATE
     Route: 042
  30. MORPHINE HYDROCHLORIDE [Suspect]
     Active Substance: MORPHINE HYDROCHLORIDE
     Indication: Breast cancer
     Route: 042
  31. MORPHINE SULFATE [Suspect]
     Active Substance: MORPHINE SULFATE
     Indication: Breast cancer
     Route: 065
  32. MORPHINE SULFATE [Suspect]
     Active Substance: MORPHINE SULFATE
     Route: 042
  33. MORPHINE SULFATE [Suspect]
     Active Substance: MORPHINE SULFATE
     Route: 042
  34. PACLITAXEL [Suspect]
     Active Substance: PACLITAXEL
     Indication: Breast cancer
     Route: 042
  35. PACLITAXEL [Suspect]
     Active Substance: PACLITAXEL
     Route: 042
  36. PANTOPRAZOLE SODIUM ANHYDROUS [Suspect]
     Active Substance: PANTOPRAZOLE SODIUM ANHYDROUS
     Indication: Breast cancer
     Route: 042
  37. AZITHROMYCIN [Suspect]
     Active Substance: AZITHROMYCIN
     Indication: Breast cancer
     Route: 042
  38. CYCLOPHOSPHAMIDE [Suspect]
     Active Substance: CYCLOPHOSPHAMIDE
     Indication: Breast cancer
     Dosage: 2000MG/VIAL
     Route: 042
  39. CYCLOPHOSPHAMIDE [Suspect]
     Active Substance: CYCLOPHOSPHAMIDE
     Route: 042
  40. METHYLPREDNISOLONE SODIUM SUCCINATE [Suspect]
     Active Substance: METHYLPREDNISOLONE SODIUM SUCCINATE
     Indication: Breast cancer
     Route: 042
  41. METHYLPREDNISOLONE SODIUM SUCCINATE [Suspect]
     Active Substance: METHYLPREDNISOLONE SODIUM SUCCINATE
     Route: 042
  42. METHYLPREDNISOLONE SODIUM SUCCINATE [Suspect]
     Active Substance: METHYLPREDNISOLONE SODIUM SUCCINATE
     Route: 042
  43. METHYLPREDNISOLONE SODIUM SUCCINATE [Suspect]
     Active Substance: METHYLPREDNISOLONE SODIUM SUCCINATE
     Route: 042
  44. METOPROLOL [Suspect]
     Active Substance: METOPROLOL
     Indication: Breast cancer
     Dosage: 4.0 DAYS
     Route: 042
  45. METOPROLOL [Suspect]
     Active Substance: METOPROLOL
     Route: 042
  46. METOPROLOL [Suspect]
     Active Substance: METOPROLOL
     Route: 042
  47. METOPROLOL [Suspect]
     Active Substance: METOPROLOL
     Route: 042
  48. CYCLOPHOSPHAMIDE [Suspect]
     Active Substance: CYCLOPHOSPHAMIDE
     Indication: Breast cancer
     Route: 042
  49. PANTOPRAZOLE [Suspect]
     Active Substance: PANTOPRAZOLE
     Indication: Breast cancer
     Route: 042
  50. LOVENOX [Suspect]
     Active Substance: ENOXAPARIN SODIUM
     Indication: Breast cancer
     Route: 058
  51. LOVENOX [Suspect]
     Active Substance: ENOXAPARIN SODIUM
     Route: 058
  52. LOVENOX [Suspect]
     Active Substance: ENOXAPARIN SODIUM
     Route: 058
  53. CYCLOPHOSPHAMIDE [Suspect]
     Active Substance: CYCLOPHOSPHAMIDE
     Indication: Breast cancer
     Route: 042
  54. LOVENOX [Suspect]
     Active Substance: ENOXAPARIN SODIUM
     Indication: Breast cancer
     Route: 058
  55. METOPROLOL TARTRATE [Suspect]
     Active Substance: METOPROLOL TARTRATE
     Indication: Breast cancer
     Route: 042
  56. METOPROLOL TARTRATE [Suspect]
     Active Substance: METOPROLOL TARTRATE
     Route: 042
  57. MORPHINE [Suspect]
     Active Substance: MORPHINE
     Indication: Breast cancer
     Route: 042
  58. DOXORUBICIN [Suspect]
     Active Substance: DOXORUBICIN
     Indication: Breast cancer
     Route: 042
  59. PANTOPRAZOLE SODIUM ANHYDROUS [Suspect]
     Active Substance: PANTOPRAZOLE SODIUM ANHYDROUS
     Indication: Breast cancer
     Route: 065
  60. METHYLPREDNISOLONE [Suspect]
     Active Substance: METHYLPREDNISOLONE
     Indication: Breast cancer
     Route: 042
  61. APREPITANT [Concomitant]
     Active Substance: APREPITANT
     Indication: Supportive care
     Route: 048
  62. DEXAMETHASONE [Concomitant]
     Active Substance: DEXAMETHASONE
     Indication: Supportive care
     Route: 048
  63. FILGRASTIM [Concomitant]
     Active Substance: FILGRASTIM
     Indication: Supportive care
     Route: 058
  64. GABAPENTIN [Concomitant]
     Active Substance: GABAPENTIN
     Route: 048
  65. METOCLOPRAMIDE [Concomitant]
     Active Substance: METOCLOPRAMIDE
     Route: 048
  66. METOCLOPRAMIDE [Concomitant]
     Active Substance: METOCLOPRAMIDE
  67. ONDANSETRON [Concomitant]
     Active Substance: ONDANSETRON
     Indication: Supportive care
     Route: 048
  68. ACETAMINOPHEN [Concomitant]
     Active Substance: ACETAMINOPHEN
  69. CAFFEINE [Concomitant]
     Active Substance: CAFFEINE
  70. CODEINE [Concomitant]
     Active Substance: CODEINE

REACTIONS (3)
  - Alveolitis [Fatal]
  - Atrial fibrillation [Fatal]
  - Hypoxia [Fatal]
